FAERS Safety Report 7794086-4 (Version None)
Quarter: 2011Q4

REPORT INFORMATION
  Report Type: 
  Country: None (occurrence: None)
  Receive Date: 20111004
  Receipt Date: 20110923
  Transmission Date: 20120403
  Serious: Yes (Other)
  Sender: FDA-Public Use
  Company Number: US-JNJFOC-20110910840

PATIENT
  Sex: Female
  Weight: 89.81 kg

DRUGS (7)
  1. ALL OTHER THERAPEUTIC PRODUCTS [Concomitant]
     Indication: PRURITUS
     Route: 048
     Dates: start: 20100101
  2. COREG [Concomitant]
     Indication: BLOOD PRESSURE
     Route: 048
     Dates: start: 20060101
  3. REMICADE [Suspect]
     Indication: PSORIATIC ARTHROPATHY
     Route: 042
     Dates: start: 20040101, end: 20040101
  4. PERCOCET [Concomitant]
     Indication: PAIN
     Dosage: 325 MG/FOUR TIMES A DAY AS NEEDED
     Route: 048
     Dates: start: 20050101
  5. CYMBALTA [Concomitant]
     Indication: ANXIETY
     Route: 048
     Dates: start: 20080101
  6. LISINOPRIL [Concomitant]
     Indication: BLOOD PRESSURE
     Dosage: 12 MG DAILY
     Route: 048
     Dates: start: 20060101
  7. OXYCONTIN [Concomitant]
     Indication: PAIN
     Route: 048
     Dates: start: 20060101

REACTIONS (3)
  - HYPERSENSITIVITY [None]
  - DYSPNOEA [None]
  - DIABETES MELLITUS [None]
